FAERS Safety Report 11985511 (Version 1)
Quarter: 2016Q1

REPORT INFORMATION
  Report Type: Not Available
  Country: US (occurrence: US)
  Receive Date: 20160201
  Receipt Date: 20160201
  Transmission Date: 20160526
  Serious: No
  Sender: FDA-Public Use
  Company Number: US-ANIPHARMA-2015-US-001146

PATIENT
  Age: 30 Year
  Sex: Male
  Weight: 70.31 kg

DRUGS (2)
  1. FLUVOXAMINE (NON-SPECIFIC) [Suspect]
     Active Substance: FLUVOXAMINE
     Dosage: 50MG 2X DAILY
     Route: 048
     Dates: start: 201505
  2. VITAMIN C [Concomitant]
     Active Substance: ASCORBIC ACID

REACTIONS (4)
  - Diarrhoea [Unknown]
  - Mydriasis [Unknown]
  - Confusional state [Unknown]
  - Fatigue [Unknown]
